FAERS Safety Report 11127413 (Version 1)
Quarter: 2015Q2

REPORT INFORMATION
  Report Type: Spontaneous
  Country: US (occurrence: None)
  Receive Date: 20150520
  Receipt Date: 20150520
  Transmission Date: 20150821
  Serious: No
  Sender: FDA-Public Use
  Company Number: None

PATIENT
  Age: 58 Year
  Sex: Female

DRUGS (2)
  1. SOVALDI [Suspect]
     Active Substance: SOFOSBUVIR
     Indication: HEPATITIS C
     Route: 048
     Dates: start: 20150318
  2. RIBASPHERE [Suspect]
     Active Substance: RIBAVIRIN
     Dosage: 1 PO QAM 1 QPM PO
     Route: 048

REACTIONS (3)
  - Vision blurred [None]
  - Contusion [None]
  - Headache [None]

NARRATIVE: CASE EVENT DATE: 201504
